FAERS Safety Report 5340194-7 (Version None)
Quarter: 2007Q2

REPORT INFORMATION
  Report Type: 
  Country: None (occurrence: None)
  Receive Date: 20070531
  Receipt Date: 20070528
  Transmission Date: 20071010
  Serious: Yes (Other)
  Sender: FDA-Public Use
  Company Number: B0472883A

PATIENT
  Age: 70 Year
  Sex: Male

DRUGS (4)
  1. ARIXTRA [Suspect]
     Dosage: 2.5MG PER DAY
     Route: 058
     Dates: start: 20070501
  2. INSULINE [Concomitant]
  3. ANTIHYPERTENSIVE (UNSPECIFIED) [Concomitant]
  4. ANTI-CHOLESTEROL MEDICATION [Concomitant]

REACTIONS (2)
  - ANAEMIA [None]
  - THROMBOCYTHAEMIA [None]
